FAERS Safety Report 4505287-2 (Version None)
Quarter: 2004Q4

REPORT INFORMATION
  Report Type: 
  Country: None (occurrence: None)
  Receive Date: 20041018
  Receipt Date: 20030826
  Transmission Date: 20050328
  Serious: Yes (Other)
  Sender: FDA-Public Use
  Company Number: PHEH2003US07758

PATIENT
  Age: 69 Year
  Sex: Female

DRUGS (3)
  1. MIACALCIN [Suspect]
     Indication: OSTEOPOROSIS
     Dosage: 1 SPRAY ALTERNATING NOSTRILS QD, NASAL
     Route: 045
     Dates: start: 20030201, end: 20030825
  2. ASPIRIN [Concomitant]
  3. MULTIVITAMINS (PANETHENOL, RETINOL) [Concomitant]

REACTIONS (1)
  - DEPRESSION [None]
